FAERS Safety Report 7598477-6 (Version None)
Quarter: 2011Q3

REPORT INFORMATION
  Report Type: 
  Country: None (occurrence: None)
  Receive Date: 20110708
  Receipt Date: 20110704
  Transmission Date: 20111222
  Serious: Yes (Death, Other)
  Sender: FDA-Public Use
  Company Number: IT-ELI_LILLY_AND_COMPANY-IT201107001338

PATIENT
  Age: 76 Year
  Sex: Male

DRUGS (3)
  1. GEMCITABINE HYDROCHLORIDE [Suspect]
     Dosage: 1200 MG/M2, UNKNOWN
     Route: 065
  2. OXALIPLATIN [Concomitant]
     Dosage: 120 MG/M2, UNKNOWN
     Route: 065
  3. IFOSFAMIDE [Concomitant]
     Dosage: 5 G/M2
     Route: 065

REACTIONS (2)
  - SEPTIC SHOCK [None]
  - NEOPLASM PROGRESSION [None]
